FAERS Safety Report 10655653 (Version 1)
Quarter: 2014Q4

REPORT INFORMATION
  Report Type: Spontaneous
  Country: GR (occurrence: GR)
  Receive Date: 20141216
  Receipt Date: 20141216
  Transmission Date: 20150529
  Serious: Yes (Other)
  Sender: FDA-Public Use
  Company Number: GR-GILEAD-2014-0127102

PATIENT
  Age: 90 Year
  Sex: Male
  Weight: 75 kg

DRUGS (7)
  1. RANOLAZINE [Suspect]
     Active Substance: RANOLAZINE
     Indication: ANGINA PECTORIS
     Dosage: 375 MG, BID
     Route: 065
     Dates: start: 20141124, end: 20141202
  2. LASIX [Concomitant]
     Active Substance: FUROSEMIDE
     Dosage: 1 UNK, UNK
  3. CARDER [Concomitant]
     Dosage: 1 DF, QD
  4. LOPRESSOR [Concomitant]
     Active Substance: METOPROLOL TARTRATE
     Dosage: 0.25 DF, BID
  5. ZANTAC [Concomitant]
     Active Substance: RANITIDINE HYDROCHLORIDE
     Dosage: 1 DF, QD
  6. LEPUR [Suspect]
     Active Substance: SIMVASTATIN
     Indication: PRODUCT USED FOR UNKNOWN INDICATION
     Dosage: 1 DF, QD
     Route: 065
  7. SALOSPIR [Concomitant]
     Active Substance: ASPIRIN\CAFFEINE
     Dosage: 1 DF, QD

REACTIONS (4)
  - Alanine aminotransferase increased [Not Recovered/Not Resolved]
  - Aspartate aminotransferase increased [Not Recovered/Not Resolved]
  - Blood alkaline phosphatase increased [Not Recovered/Not Resolved]
  - Gamma-glutamyltransferase increased [Not Recovered/Not Resolved]

NARRATIVE: CASE EVENT DATE: 2014
